FAERS Safety Report 8307646-9 (Version None)
Quarter: 2012Q2

REPORT INFORMATION
  Report Type: 
  Country: None (occurrence: None)
  Receive Date: 20120424
  Receipt Date: 20120424
  Transmission Date: 20120825
  Serious: Yes (Life-Threatening, Hospitalization)
  Sender: FDA-Public Use
  Company Number: None

PATIENT
  Age: 73 Year
  Sex: Male
  Weight: 115.66 kg

DRUGS (1)
  1. KRYSTEXXA [Suspect]
     Indication: GOUT
     Dosage: 8MG
     Dates: start: 20120217, end: 20120316

REACTIONS (4)
  - LUNG DISORDER [None]
  - PNEUMOTHORAX [None]
  - CHRONIC OBSTRUCTIVE PULMONARY DISEASE [None]
  - DYSPNOEA [None]
